FAERS Safety Report 9712227 (Version 2)
Quarter: 2013Q4

REPORT INFORMATION
  Report Type: Spontaneous
  Country: US (occurrence: US)
  Receive Date: 20131126
  Receipt Date: 20131126
  Transmission Date: 20140711
  Serious: No
  Sender: FDA-Public Use
  Company Number: US-BRISTOL-MYERS SQUIBB COMPANY-19149152

PATIENT
  Age: 61 Year
  Sex: Female
  Weight: 150.56 kg

DRUGS (8)
  1. BYDUREON 2MG SUSPENSION [Suspect]
     Indication: TYPE 2 DIABETES MELLITUS
     Route: 058
     Dates: start: 20130108
  2. METFORMIN HCL [Suspect]
     Indication: TYPE 2 DIABETES MELLITUS
     Dosage: REDUCED TO 1 BID FROM 2 BID
  3. ALLOPURINOL [Concomitant]
  4. SYNTHROID [Concomitant]
  5. OMEPRAZOLE [Concomitant]
  6. LOSARTAN [Concomitant]
  7. METOPROLOL [Concomitant]
  8. MELOXICAM [Concomitant]

REACTIONS (6)
  - Nausea [Recovering/Resolving]
  - Weight decreased [Unknown]
  - Increased appetite [Unknown]
  - Injection site swelling [Unknown]
  - Thyroid function test abnormal [Unknown]
  - Fatigue [Recovering/Resolving]
